FAERS Safety Report 7068291-9 (Version None)
Quarter: 2010Q4

REPORT INFORMATION
  Report Type: 
  Country: None (occurrence: None)
  Receive Date: 20101028
  Receipt Date: 20101022
  Transmission Date: 20110411
  Serious: Yes (Hospitalization, Congenital Anomaly, Other)
  Sender: FDA-Public Use
  Company Number: A0695677A

PATIENT
  Sex: Female
  Weight: 4.1 kg

DRUGS (3)
  1. PAXIL [Suspect]
     Indication: DEPRESSION
     Dosage: 20MG PER DAY
     Dates: start: 19970201, end: 20010701
  2. PRENATAL VITAMINS [Concomitant]
  3. WELLBUTRIN [Concomitant]

REACTIONS (11)
  - ARNOLD-CHIARI MALFORMATION [None]
  - BALANCE DISORDER [None]
  - CARDIAC MURMUR [None]
  - CONGENITAL CORONARY ARTERY MALFORMATION [None]
  - COORDINATION ABNORMAL [None]
  - DEVELOPMENTAL DELAY [None]
  - DRUG EXPOSURE DURING PREGNANCY [None]
  - EPILEPSY [None]
  - HYDROCEPHALUS [None]
  - MATERNAL DRUGS AFFECTING FOETUS [None]
  - TRANSPOSITION OF THE GREAT VESSELS [None]
